FAERS Safety Report 8829033 (Version 5)
Quarter: 2018Q1

REPORT INFORMATION
  Report Type: Report from Study
  Country: DE (occurrence: DE)
  Receive Date: 20121008
  Receipt Date: 20180124
  Transmission Date: 20180509
  Serious: Yes (Death, Hospitalization)
  Sender: FDA-Public Use
  Company Number: DE-ROCHE-1141889

PATIENT
  Age: 74 Year
  Sex: Female
  Weight: 74 kg

DRUGS (12)
  1. PACLITAXEL. [Suspect]
     Active Substance: PACLITAXEL
     Indication: BREAST CANCER METASTATIC
     Route: 042
     Dates: start: 20101019, end: 20110322
  2. MOXONIDINE [Concomitant]
     Active Substance: MOXONIDINE
     Indication: HYPERTENSION
     Route: 048
     Dates: start: 1999, end: 20110806
  3. BEVACIZUMAB. [Suspect]
     Active Substance: BEVACIZUMAB
     Indication: BREAST CANCER METASTATIC
     Dosage: RECEIVED SINGLE DOSE ONLY, STOPPED ON THE SAME DAY ONLY
     Route: 042
     Dates: start: 20101019
  4. HYDROCHLOROTHIAZIDE. [Concomitant]
     Active Substance: HYDROCHLOROTHIAZIDE
     Route: 065
     Dates: start: 1999, end: 20110415
  5. AMPHO MORONAL [Concomitant]
     Active Substance: AMPHOTERICIN B
     Indication: STOMATITIS
     Route: 065
     Dates: start: 20101116
  6. ONDANSETRON [Concomitant]
     Active Substance: ONDANSETRON
     Indication: NAUSEA
     Route: 065
     Dates: start: 20101026
  7. LYRICA [Concomitant]
     Active Substance: PREGABALIN
     Indication: PAIN
     Route: 065
     Dates: start: 20110118
  8. GLIMEPIRIDE. [Concomitant]
     Active Substance: GLIMEPIRIDE
     Indication: DIABETES MELLITUS
     Route: 048
     Dates: end: 20110411
  9. BEVACIZUMAB. [Suspect]
     Active Substance: BEVACIZUMAB
     Dosage: RECEIVED SINGLE DOSE ONLY STOPPED ON THE SAME DAY.
     Route: 042
     Dates: start: 20110322
  10. BEVACIZUMAB. [Suspect]
     Active Substance: BEVACIZUMAB
     Dosage: RECEIVED SINGLE DOSE ONLY STOPPED ON THE SAME DAY.
     Route: 042
     Dates: start: 20110209
  11. VERAPAMIL HYDROCHLORIDE. [Suspect]
     Active Substance: VERAPAMIL HYDROCHLORIDE
     Indication: HYPERTENSION
     Route: 048
     Dates: start: 1999, end: 20110806
  12. BENAZEPRIL HYDROCHLORIDE. [Suspect]
     Active Substance: BENAZEPRIL HYDROCHLORIDE
     Indication: HYPERTENSION
     Dosage: DOSE: 20/25 MG
     Route: 048
     Dates: start: 1999, end: 20110415

REACTIONS (7)
  - Hypertensive crisis [Recovered/Resolved]
  - Epistaxis [Recovered/Resolved]
  - General physical health deterioration [Fatal]
  - Cardiovascular disorder [Recovered/Resolved]
  - Dizziness [Recovered/Resolved]
  - Disease progression [Fatal]
  - Hypoglycaemia [Recovered/Resolved]

NARRATIVE: CASE EVENT DATE: 20110209
